FAERS Safety Report 8311616-4 (Version None)
Quarter: 2012Q2

REPORT INFORMATION
  Report Type: 
  Country: None (occurrence: None)
  Receive Date: 20120425
  Receipt Date: 20120417
  Transmission Date: 20120825
  Serious: Yes (Other)
  Sender: FDA-Public Use
  Company Number: US-JNJFOC-20120409547

PATIENT

DRUGS (3)
  1. TH-302 [Suspect]
     Indication: SARCOMA
     Route: 042
  2. DOXORUBICIN HCL [Suspect]
     Indication: SARCOMA
     Route: 042
  3. NEUPOGEN [Suspect]
     Indication: SARCOMA
     Route: 065

REACTIONS (11)
  - NEUTROPENIA [None]
  - FATIGUE [None]
  - GENERAL PHYSICAL HEALTH DETERIORATION [None]
  - ADVERSE EVENT [None]
  - THROMBOCYTOPENIA [None]
  - ANAEMIA [None]
  - TOXICITY TO VARIOUS AGENTS [None]
  - ALOPECIA [None]
  - STOMATITIS [None]
  - DISEASE PROGRESSION [None]
  - NAUSEA [None]
